FAERS Safety Report 6382374-8 (Version None)
Quarter: 2009Q3

REPORT INFORMATION
  Report Type: 
  Country: None (occurrence: None)
  Receive Date: 20090930
  Receipt Date: 20090922
  Transmission Date: 20100115
  Serious: Yes (Other)
  Sender: FDA-Public Use
  Company Number: US-ASTRAZENECA-2009UW12946

PATIENT
  Age: 46 Year
  Sex: Female
  Weight: 81.6 kg

DRUGS (4)
  1. SEROQUEL [Suspect]
     Indication: DEPRESSION
     Route: 048
     Dates: start: 20000101, end: 20060101
  2. RISPERDAL [Concomitant]
     Indication: DEPRESSION
     Dates: start: 20060101, end: 20060101
  3. ZYPREXA [Concomitant]
     Indication: DEPRESSION
     Dates: start: 20060101
  4. ZOLOFT [Concomitant]

REACTIONS (7)
  - BACK INJURY [None]
  - BLOOD CHOLESTEROL INCREASED [None]
  - HYPERLIPIDAEMIA [None]
  - OBESITY [None]
  - SURGERY [None]
  - TYPE 2 DIABETES MELLITUS [None]
  - WEIGHT INCREASED [None]
